FAERS Safety Report 13998743 (Version 1)
Quarter: 2017Q3

REPORT INFORMATION
  Report Type: Not Available
  Country: US (occurrence: US)
  Receive Date: 20170921
  Receipt Date: 20170921
  Transmission Date: 20171128
  Serious: No
  Sender: FDA-Public Use
  Company Number: US-NEUROCRINE BIOSCIENCES INC.-2017NBI00529

PATIENT
  Age: 65 Year
  Sex: Male

DRUGS (2)
  1. INGREZZA [Suspect]
     Active Substance: VALBENAZINE
     Indication: TARDIVE DYSKINESIA
     Route: 048
     Dates: start: 20170601, end: 20170607
  2. INGREZZA [Suspect]
     Active Substance: VALBENAZINE
     Route: 048
     Dates: start: 20170608, end: 20170725

REACTIONS (10)
  - Mobility decreased [Unknown]
  - Defiant behaviour [Unknown]
  - Vomiting [Unknown]
  - Fall [Recovered/Resolved]
  - Unresponsive to stimuli [Recovered/Resolved]
  - Drooling [Recovered/Resolved]
  - Nausea [Unknown]
  - Somnolence [Recovered/Resolved]
  - Tremor [Recovered/Resolved]
  - Headache [Unknown]

NARRATIVE: CASE EVENT DATE: 2017
